FAERS Safety Report 8136832-6 (Version None)
Quarter: 2012Q1

REPORT INFORMATION
  Report Type: 
  Country: None (occurrence: None)
  Receive Date: 20120214
  Receipt Date: 20120207
  Transmission Date: 20120608
  Serious: No
  Sender: FDA-Public Use
  Company Number: US-B.I. PHARMACEUTICALS,INC./RIDGEFIELD-2011-BP-00307BP

PATIENT
  Sex: Female

DRUGS (11)
  1. BYETTA [Concomitant]
     Indication: DIABETES MELLITUS
  2. LANTUS [Concomitant]
     Indication: DIABETES MELLITUS
  3. BUSPIRONE HCL [Concomitant]
     Dosage: 15 MG
  4. FEXOFENADINE [Concomitant]
     Dosage: 180 MG
  5. ALLEGRA [Concomitant]
     Indication: SEASONAL ALLERGY
  6. PRADAXA [Suspect]
     Indication: ANTICOAGULANT THERAPY
  7. SIMVASTATIN [Concomitant]
     Indication: BLOOD CHOLESTEROL INCREASED
     Dosage: 10 MG
  8. SIMVASTATIN [Concomitant]
     Indication: DIABETES MELLITUS
  9. METFORMIN HCL [Concomitant]
     Indication: DIABETES MELLITUS
     Dosage: 500 MG
  10. PRADAXA [Suspect]
     Indication: ATRIAL FIBRILLATION
     Dosage: 300 MG
     Route: 048
     Dates: start: 20101221, end: 20110103
  11. ACTOS [Concomitant]
     Indication: DIABETES MELLITUS
     Dosage: 45 MG

REACTIONS (8)
  - RASH [None]
  - WOUND DRAINAGE [None]
  - HYPERSENSITIVITY [None]
  - SCAR [None]
  - OEDEMA PERIPHERAL [None]
  - ERYTHEMA [None]
  - BLISTER [None]
  - URTICARIA [None]
